FAERS Safety Report 4995486-8 (Version None)
Quarter: 2006Q2

REPORT INFORMATION
  Report Type: 
  Country: None (occurrence: None)
  Receive Date: 20060504
  Receipt Date: 20060421
  Transmission Date: 20061013
  Serious: Yes (Hospitalization)
  Sender: FDA-Public Use
  Company Number: B0421730A

PATIENT
  Age: 35 Year
  Sex: Male

DRUGS (5)
  1. EPIVIR [Suspect]
     Indication: HIV INFECTION
     Dates: start: 20010401
  2. RETROVIR [Suspect]
     Indication: HIV INFECTION
     Dates: start: 20010401
  3. EFAVIRENZ [Suspect]
     Indication: HIV INFECTION
     Dates: start: 20010401
  4. TENOFOVIR (TENOFOVIR) [Suspect]
     Indication: HIV INFECTION
  5. INDINIVIR SULFATE [Suspect]
     Indication: HIV INFECTION
     Dates: start: 20010401, end: 20020101

REACTIONS (17)
  - ACID FAST BACILLI INFECTION [None]
  - ASTHENIA [None]
  - BACK PAIN [None]
  - BLOOD ALKALINE PHOSPHATASE INCREASED [None]
  - FALL [None]
  - IMMUNE RECONSTITUTION SYNDROME [None]
  - INTERVERTEBRAL DISC COMPRESSION [None]
  - INTERVERTEBRAL DISCITIS [None]
  - MUSCLE ATROPHY [None]
  - MYALGIA [None]
  - MYCOBACTERIUM AVIUM COMPLEX INFECTION [None]
  - NEPHROLITHIASIS [None]
  - NEUROPATHY PERIPHERAL [None]
  - PSOAS ABSCESS [None]
  - PYREXIA [None]
  - SPONDYLITIS [None]
  - TUBERCULOSIS [None]
